FAERS Safety Report 8016223-9 (Version None)
Quarter: 2011Q4

REPORT INFORMATION
  Report Type: 
  Country: None (occurrence: None)
  Receive Date: 20111230
  Receipt Date: 20111221
  Transmission Date: 20120403
  Serious: Yes (Hospitalization)
  Sender: FDA-Public Use
  Company Number: US-ELI_LILLY_AND_COMPANY-US201112007552

PATIENT
  Age: 58 Year
  Sex: Male
  Weight: 98 kg

DRUGS (7)
  1. DIGOXIN [Concomitant]
  2. ADVAIR DISKUS 100/50 [Concomitant]
  3. REMODULIN [Concomitant]
     Indication: OBSTRUCTIVE AIRWAYS DISORDER
     Dosage: 26 DF, OTHER
     Route: 042
     Dates: start: 20110523
  4. ASPIRIN [Concomitant]
     Dosage: 81 MG, UNK
  5. SPIRIVA [Concomitant]
  6. ADCIRCA [Suspect]
  7. DIURETICS [Concomitant]

REACTIONS (2)
  - HEAD INJURY [None]
  - FALL [None]
